FAERS Safety Report 17271232 (Version 1)
Quarter: 2020Q1

REPORT INFORMATION
  Report Type: Spontaneous
  Country: FR (occurrence: FR)
  Receive Date: 20200115
  Receipt Date: 20200115
  Transmission Date: 20200409
  Serious: Yes (Other)
  Sender: FDA-Public Use
  Company Number: FR-TEVA-2020-FR-1169653

PATIENT
  Sex: Female
  Weight: 68 kg

DRUGS (3)
  1. ESTRADIOL. [Suspect]
     Active Substance: ESTRADIOL
     Indication: FIBROMA
     Dosage: 1 DOSAGE FORMS DAILY;
     Route: 003
     Dates: start: 20070101, end: 20171231
  2. ANDROCUR 50 MG [Suspect]
     Active Substance: CYPROTERONE ACETATE
     Indication: FIBROMA
     Dosage: 50 MILLIGRAM DAILY;
     Route: 048
     Dates: start: 20070101, end: 20171231
  3. LUTERAN 10 MG [Suspect]
     Active Substance: CHLORMADINONE ACETATE
     Indication: FIBROMA
     Dosage: 10 MILLIGRAM DAILY;
     Route: 048
     Dates: start: 20180101, end: 201909

REACTIONS (3)
  - Headache [Recovering/Resolving]
  - Meningioma [Not Recovered/Not Resolved]
  - Vision blurred [Recovering/Resolving]

NARRATIVE: CASE EVENT DATE: 2016
